FAERS Safety Report 14213296 (Version 1)
Quarter: 2017Q4

REPORT INFORMATION
  Report Type: Spontaneous
  Country: US (occurrence: US)
  Receive Date: 20171122
  Receipt Date: 20171122
  Transmission Date: 20180321
  Serious: Yes (Disabling)
  Sender: FDA-Public Use
  Company Number: None

PATIENT
  Age: 47 Year
  Sex: Female
  Weight: 85.5 kg

DRUGS (2)
  1. MULTIVITAMINS [Concomitant]
     Active Substance: VITAMINS
  2. FLUCONAZOLE TABLET USP, 150 MG [Suspect]
     Active Substance: FLUCONAZOLE
     Indication: TINEA PEDIS
     Dosage: ?          QUANTITY:1 TABLET(S);?
     Route: 048
     Dates: start: 20171106, end: 20171110

REACTIONS (1)
  - Vitreous detachment [None]

NARRATIVE: CASE EVENT DATE: 20171110
